FAERS Safety Report 13435476 (Version 2)
Quarter: 2017Q2

REPORT INFORMATION
  Report Type: Other
  Country: JP (occurrence: JP)
  Receive Date: 20170413
  Receipt Date: 20170504
  Transmission Date: 20170830
  Serious: Yes (Other)
  Sender: FDA-Public Use
  Company Number: JP-EMD SERONO-8152805

PATIENT
  Age: 13 Year
  Sex: Male

DRUGS (2)
  1. SAIZEN [Suspect]
     Active Substance: SOMATROPIN
     Indication: GROWTH HORMONE DEFICIENCY
  2. SAIZEN [Suspect]
     Active Substance: SOMATROPIN
     Dosage: DOSE INCREASED

REACTIONS (2)
  - Insulin-like growth factor decreased [Unknown]
  - Hepatoblastoma [Unknown]
